FAERS Safety Report 15887697 (Version 2)
Quarter: 2019Q1

REPORT INFORMATION
  Report Type: Spontaneous
  Country: US (occurrence: US)
  Receive Date: 20190130
  Receipt Date: 20190214
  Transmission Date: 20190417
  Serious: Yes (Death)
  Sender: FDA-Public Use
  Company Number: US-ROCHE-2252196

PATIENT
  Age: 48 Year
  Sex: Female
  Weight: 98.06 kg

DRUGS (15)
  1. BACLOFEN. [Concomitant]
     Active Substance: BACLOFEN
  2. CYMBALTA [Concomitant]
     Active Substance: DULOXETINE HYDROCHLORIDE
  3. COZAAR [Concomitant]
     Active Substance: LOSARTAN POTASSIUM
  4. NORCO [Concomitant]
     Active Substance: ACETAMINOPHEN\HYDROCODONE BITARTRATE
  5. VALIUM [Concomitant]
     Active Substance: DIAZEPAM
     Route: 065
  6. AMPYRA [Concomitant]
     Active Substance: DALFAMPRIDINE
  7. LOSARTAN. [Concomitant]
     Active Substance: LOSARTAN
  8. OCREVUS [Suspect]
     Active Substance: OCRELIZUMAB
     Route: 065
     Dates: start: 20180913
  9. NORVASC [Concomitant]
     Active Substance: AMLODIPINE BESYLATE
  10. NEURONTIN [Concomitant]
     Active Substance: GABAPENTIN
  11. ZANAFLEX [Concomitant]
     Active Substance: TIZANIDINE HYDROCHLORIDE
  12. OCREVUS [Suspect]
     Active Substance: OCRELIZUMAB
     Indication: MULTIPLE SCLEROSIS
     Route: 065
     Dates: start: 20170815
  13. OCREVUS [Suspect]
     Active Substance: OCRELIZUMAB
     Route: 065
     Dates: start: 20170829
  14. FLOMAX [Concomitant]
     Active Substance: TAMSULOSIN HYDROCHLORIDE
  15. OCREVUS [Suspect]
     Active Substance: OCRELIZUMAB
     Route: 065
     Dates: start: 20180307

REACTIONS (4)
  - Cardiac disorder [Fatal]
  - Nasopharyngitis [Fatal]
  - Cardiac failure [Fatal]
  - Acute myocardial infarction [Fatal]

NARRATIVE: CASE EVENT DATE: 20181228
